FAERS Safety Report 12856334 (Version 1)
Quarter: 2016Q4

REPORT INFORMATION
  Report Type: Spontaneous
  Country: GB (occurrence: GB)
  Receive Date: 20161018
  Receipt Date: 20161018
  Transmission Date: 20170207
  Serious: Yes (Other)
  Sender: FDA-Public Use
  Company Number: GB-009507513-1610GBR008514

PATIENT
  Age: 3 Year
  Sex: Male
  Weight: 25 kg

DRUGS (2)
  1. BECLOMETHASONE DIPROPIONATE [Concomitant]
     Active Substance: BECLOMETHASONE DIPROPIONATE
     Dosage: 200 MICROGRAM, BID
     Route: 055
     Dates: start: 20131105, end: 20131225
  2. SINGULAIR [Suspect]
     Active Substance: MONTELUKAST SODIUM
     Indication: ASTHMA
     Dosage: 4 MG, UNK
     Route: 048
     Dates: start: 20131105, end: 20131205

REACTIONS (4)
  - Abnormal behaviour [Recovered/Resolved]
  - Self-injurious ideation [Recovered/Resolved]
  - Depression [Recovered/Resolved]
  - Self esteem decreased [Recovered/Resolved]

NARRATIVE: CASE EVENT DATE: 20131115
